FAERS Safety Report 16628890 (Version 2)
Quarter: 2019Q3

REPORT INFORMATION
  Report Type: Spontaneous
  Country: US (occurrence: US)
  Receive Date: 20190725
  Receipt Date: 20190926
  Transmission Date: 20191004
  Serious: No
  Sender: FDA-Public Use
  Company Number: US-JNJFOC-20190726106

PATIENT
  Sex: Male
  Weight: 95.34 kg

DRUGS (5)
  1. LOSINOPRIL [Concomitant]
     Indication: PRODUCT USED FOR UNKNOWN INDICATION
     Dosage: 1-2 WEEKS
     Route: 065
  2. TRAMADOL HYDROCHLORIDE. [Concomitant]
     Active Substance: TRAMADOL HYDROCHLORIDE
     Indication: ARTHRALGIA
     Dosage: FOR THE PAST 6 YEARS?MAY DOSAGE ARE 4 IN 24 HOURS
     Route: 065
     Dates: start: 20160101
  3. AMLODIPINE [Concomitant]
     Active Substance: AMLODIPINE BESYLATE
     Indication: PRODUCT USED FOR UNKNOWN INDICATION
     Dosage: FOR 5 YEARS
     Route: 065
  4. TYLENOL 8 HR ARTHRITIS PAIN [Suspect]
     Active Substance: ACETAMINOPHEN
     Indication: SKIN ULCER
     Dosage: 2 CAPLETS 2-3 X PER DAY?MAY DOSAGE ARE 6 IN 24 HOURS
     Route: 048
  5. TORSEMIDE. [Concomitant]
     Active Substance: TORSEMIDE
     Indication: PRODUCT USED FOR UNKNOWN INDICATION
     Dosage: FOR 6 YEARS
     Route: 065

REACTIONS (1)
  - Inappropriate schedule of product administration [Unknown]
